FAERS Safety Report 4763801-6 (Version None)
Quarter: 2005Q3

REPORT INFORMATION
  Report Type: 
  Country: None (occurrence: None)
  Receive Date: 20050901
  Receipt Date: 20041129
  Transmission Date: 20060218
  Serious: Yes (Other)
  Sender: FDA-Public Use
  Company Number: 15563

PATIENT
  Age: 49 Year
  Sex: Female
  Weight: 66.6788 kg

DRUGS (6)
  1. PACLITAXEL [Suspect]
     Indication: BREAST CANCER RECURRENT
     Dosage: 310MG/500ML OVER 3HR
     Dates: start: 20041129
  2. AMOXICILLIN [Concomitant]
  3. LIPITOR [Concomitant]
  4. WELLBUTRIN [Concomitant]
  5. PROZAC [Concomitant]
  6. ATIVAN [Concomitant]

REACTIONS (3)
  - BACK PAIN [None]
  - DYSPNOEA [None]
  - FLUSHING [None]
